FAERS Safety Report 4583377-6 (Version None)
Quarter: 2005Q1

REPORT INFORMATION
  Report Type: 
  Country: None (occurrence: None)
  Receive Date: 20050121
  Receipt Date: 20041015
  Transmission Date: 20050727
  Serious: Yes (Life-Threatening, Other)
  Sender: FDA-Public Use
  Company Number: 2004-10-1121

PATIENT
  Age: 29 Year
  Sex: Male

DRUGS (1)
  1. CLARINEX [Suspect]
     Dosage: 5MG ORAL
     Route: 048
     Dates: start: 20041014, end: 20041014

REACTIONS (1)
  - ANAPHYLACTIC REACTION [None]
